FAERS Safety Report 18371539 (Version 5)
Quarter: 2022Q1

REPORT INFORMATION
  Report Type: Spontaneous
  Country: US (occurrence: US)
  Receive Date: 20201012
  Receipt Date: 20220325
  Transmission Date: 20220424
  Serious: No
  Sender: FDA-Public Use
  Company Number: US-PFIZER INC-2020381433

PATIENT
  Age: 16 Year
  Sex: Male
  Weight: 54.43 kg

DRUGS (1)
  1. GENOTROPIN [Suspect]
     Active Substance: SOMATROPIN
     Indication: Short stature
     Dosage: 3 MG, 1X/DAY (NIGHTLY, ROTATING INJECTION SITES ON HIS LEGS)

REACTIONS (3)
  - Weight decreased [Unknown]
  - Device power source issue [Unknown]
  - Device use issue [Unknown]
